FAERS Safety Report 9015372 (Version 1)
Quarter: 2013Q1

REPORT INFORMATION
  Report Type: Spontaneous
  Country: US (occurrence: US)
  Receive Date: 20130116
  Receipt Date: 20130116
  Transmission Date: 20140127
  Serious: Yes (Hospitalization)
  Sender: FDA-Public Use
  Company Number: US-BAYER-2013-003647

PATIENT
  Age: 47 Year
  Sex: Female
  Weight: 75.28 kg

DRUGS (12)
  1. YAZ [Suspect]
  2. YASMIN [Suspect]
  3. ADVAIR [Concomitant]
     Dosage: UNK UNK, BID
     Route: 045
  4. SINGULAIR [Concomitant]
     Dosage: 10 MG, UNK
  5. ASTELIN [Concomitant]
  6. ZOLOFT [Concomitant]
     Dosage: 50 MG, UNK
  7. VENTOLIN HFA [Concomitant]
     Dosage: 90 MCG
  8. ALBUTEROL SULFATE [Concomitant]
     Dosage: UNK UNK, PRN
     Route: 045
  9. VERAMYST [Concomitant]
     Dosage: 27.5 MCG
  10. AZITHROMYCIN [Concomitant]
     Dosage: 500 MG, 3 DISPENSED
  11. IBUPROFEN [Concomitant]
  12. MAALOX [Concomitant]

REACTIONS (2)
  - Pulmonary embolism [None]
  - Pelvic venous thrombosis [None]
